FAERS Safety Report 7937654-9 (Version None)
Quarter: 2011Q4

REPORT INFORMATION
  Report Type: 
  Country: None (occurrence: None)
  Receive Date: 20111123
  Receipt Date: 20111111
  Transmission Date: 20120403
  Serious: Yes (Other)
  Sender: FDA-Public Use
  Company Number: PHHY2010GB07973

PATIENT
  Sex: Female

DRUGS (2)
  1. ZOPICLONE [Concomitant]
     Indication: SLEEP DISORDER
  2. SANDOSTATIN LAR [Suspect]
     Indication: HEPATIC NEOPLASM
     Dosage: 20 MG EVERY 28 DAYS

REACTIONS (7)
  - MICTURITION URGENCY [None]
  - DYSKINESIA [None]
  - PARAESTHESIA [None]
  - THIRST [None]
  - CARDIAC DISCOMFORT [None]
  - HEART RATE IRREGULAR [None]
  - DIARRHOEA [None]
